FAERS Safety Report 4937451-2 (Version None)
Quarter: 2006Q1

REPORT INFORMATION
  Report Type: 
  Country: None (occurrence: None)
  Receive Date: 20060309
  Receipt Date: 20060228
  Transmission Date: 20060701
  Serious: Yes (Death, Hospitalization)
  Sender: FDA-Public Use
  Company Number: JP-ABBOTT-06P-087-0326337-00

PATIENT
  Age: 67 Year
  Sex: Male

DRUGS (4)
  1. LEUPLIN FOR INJECTION KIT [Suspect]
     Indication: PROSTATE CANCER
     Route: 048
  2. LEUPLIN FOR INJECTION KIT [Suspect]
  3. FLUTAMIDE [Suspect]
     Indication: PROSTATE CANCER
  4. CHLORMADINONE ACETATE TAB [Concomitant]
     Indication: DRUG USE FOR UNKNOWN INDICATION
     Route: 048

REACTIONS (1)
  - INTERSTITIAL LUNG DISEASE [None]
